FAERS Safety Report 11358981 (Version 1)
Quarter: 2015Q3

REPORT INFORMATION
  Report Type: Spontaneous
  Country: US (occurrence: None)
  Receive Date: 20150729
  Receipt Date: 20150729
  Transmission Date: 20151125
  Serious: Yes (Other)
  Sender: FDA-Public Use
  Company Number: 2015-01086

PATIENT
  Age: 56 Year
  Sex: Female

DRUGS (1)
  1. TRAMADOL HYDROCHLORIDE (AELLC) (TRAMADOL) UNK, UNKUNK [Suspect]
     Active Substance: TRAMADOL HYDROCHLORIDE
     Indication: PAIN
     Route: 048
     Dates: start: 201410

REACTIONS (2)
  - Seizure [None]
  - Dysarthria [None]

NARRATIVE: CASE EVENT DATE: 201410
